FAERS Safety Report 5007283-8 (Version None)
Quarter: 2006Q2

REPORT INFORMATION
  Report Type: 
  Country: None (occurrence: None)
  Receive Date: 20060517
  Receipt Date: 20060503
  Transmission Date: 20061013
  Serious: Yes (Hospitalization)
  Sender: FDA-Public Use
  Company Number: 2006PV012547

PATIENT
  Age: 55 Year
  Sex: Female
  Weight: 86.1834 kg

DRUGS (18)
  1. BYETTA [Suspect]
     Indication: DIABETES MELLITUS NON-INSULIN-DEPENDENT
     Dosage: 5 MCG;BID;SC
     Route: 058
     Dates: start: 20060224, end: 20060417
  2. NEXIUM [Concomitant]
  3. METFORMIN [Concomitant]
  4. TRICOR [Concomitant]
  5. CRESTOR [Concomitant]
  6. PREMARIN [Concomitant]
  7. LEVOXYL [Concomitant]
  8. WELLBUTRIN [Concomitant]
  9. LEVOXYL [Concomitant]
  10. SEROQUEL [Concomitant]
  11. RELPAX [Concomitant]
  12. FIORINAL [Concomitant]
  13. COMBIVENT [Concomitant]
  14. FLOVENT [Concomitant]
  15. LISINOPRIL [Concomitant]
  16. ATENOLOL [Concomitant]
  17. FISH OIL [Concomitant]
  18. ASCORBIC ACID [Concomitant]

REACTIONS (16)
  - ANKLE FRACTURE [None]
  - DECREASED APPETITE [None]
  - DEHYDRATION [None]
  - DIARRHOEA [None]
  - DIZZINESS [None]
  - DRUG INTERACTION [None]
  - FALL [None]
  - FEELING ABNORMAL [None]
  - HYPOTENSION [None]
  - LIVER FUNCTION TEST ABNORMAL [None]
  - LOSS OF CONSCIOUSNESS [None]
  - NAUSEA [None]
  - PHARMACEUTICAL PRODUCT COMPLAINT [None]
  - RENAL FUNCTION TEST ABNORMAL [None]
  - RETCHING [None]
  - VOMITING [None]
